FAERS Safety Report 17609017 (Version 1)
Quarter: 2020Q2

REPORT INFORMATION
  Report Type: Spontaneous
  Country: SE (occurrence: SE)
  Receive Date: 20200401
  Receipt Date: 20200401
  Transmission Date: 20200713
  Serious: Yes (Disabling)
  Sender: FDA-Public Use
  Company Number: SE-TEVA-2020-SE-1214155

PATIENT
  Sex: Female
  Weight: 50 kg

DRUGS (2)
  1. PREDNISOLONE. [Suspect]
     Active Substance: PREDNISOLONE
     Indication: BRONCHITIS
     Dosage: ^SINGLE PRINTED^
     Dates: start: 2015
  2. GIONA EASYHALER [Suspect]
     Active Substance: BUDESONIDE
     Indication: ASTHMA
     Dosage: INHALATOR
     Route: 055
     Dates: start: 2015

REACTIONS (3)
  - Cataract [Not Recovered/Not Resolved]
  - Visual impairment [Not Recovered/Not Resolved]
  - Photopsia [Not Recovered/Not Resolved]
